FAERS Safety Report 8359820-3 (Version None)
Quarter: 2012Q2

REPORT INFORMATION
  Report Type: 
  Country: None (occurrence: None)
  Receive Date: 20120515
  Receipt Date: 20120509
  Transmission Date: 20120825
  Serious: Yes (Other)
  Sender: FDA-Public Use
  Company Number: PHHY2009CA17422

PATIENT
  Sex: Female

DRUGS (6)
  1. SANDOSTATIN LAR [Suspect]
     Indication: ACROMEGALY
     Dosage: 20 MG, EVERY 4 WEEKS
     Route: 030
     Dates: start: 20080923
  2. SANDOSTATIN LAR [Suspect]
     Dosage: 30 MG EVERY 3 WEEKS
     Route: 030
  3. SANDOSTATIN LAR [Suspect]
     Dosage: 30 MG, EVERY 4 WEEKS
     Route: 030
     Dates: start: 20080923, end: 20090629
  4. LISINOPRIL [Concomitant]
  5. ASPIRIN [Concomitant]
  6. INSULIN [Concomitant]

REACTIONS (5)
  - CONSTIPATION [None]
  - SKIN DISCOLOURATION [None]
  - MUSCLE SPASMS [None]
  - URINARY INCONTINENCE [None]
  - BLOOD GLUCOSE DECREASED [None]
